FAERS Safety Report 9796843 (Version 3)
Quarter: 2015Q3

REPORT INFORMATION
  Report Type: Spontaneous
  Country: US (occurrence: US)
  Receive Date: 20140103
  Receipt Date: 20150817
  Transmission Date: 20151125
  Serious: No
  Sender: FDA-Public Use
  Company Number: US-GILEAD-2014-0091135

PATIENT
  Age: 65 Year
  Sex: Female

DRUGS (23)
  1. LETAIRIS [Suspect]
     Active Substance: AMBRISENTAN
     Indication: CARDIAC FAILURE CONGESTIVE
  2. HUMALOG [Concomitant]
     Active Substance: INSULIN LISPRO
  3. CYMBALTA [Concomitant]
     Active Substance: DULOXETINE HYDROCHLORIDE
  4. MULTIVITAMIN                       /07504101/ [Concomitant]
     Active Substance: VITAMINS
  5. VITAMIN B COMPLEX [Concomitant]
     Active Substance: CYANOCOBALAMIN\DEXPANTHENOL\NIACINAMIDE\PYRIDOXINE HYDROCHLORIDE\RIBOFLAVIN 5^-PHOSPHATE SODIUM\THIAMINE HYDROCHLORIDE\VITAMIN B COMPLEX
  6. VITAMIN C [Concomitant]
     Active Substance: ASCORBIC ACID
  7. SYMBICORT [Concomitant]
     Active Substance: BUDESONIDE\FORMOTEROL FUMARATE DIHYDRATE
  8. LETAIRIS [Suspect]
     Active Substance: AMBRISENTAN
     Indication: CHRONIC RESPIRATORY FAILURE
  9. ALBUTEROL                          /00139501/ [Concomitant]
     Active Substance: ALBUTEROL
  10. LANTUS [Concomitant]
     Active Substance: INSULIN GLARGINE
  11. OMEPRAZOLE. [Concomitant]
     Active Substance: OMEPRAZOLE
  12. WARFARIN [Concomitant]
     Active Substance: WARFARIN
  13. HYDROCODONE BITARTRATE AND ACETAMINOPHEN [Concomitant]
     Active Substance: ACETAMINOPHEN\HYDROCODONE BITARTRATE
  14. ASPIRIN. [Concomitant]
     Active Substance: ASPIRIN
  15. RANEXA [Concomitant]
     Active Substance: RANOLAZINE
  16. VENTOLIN [Concomitant]
     Active Substance: ALBUTEROL SULFATE
  17. LETAIRIS [Suspect]
     Active Substance: AMBRISENTAN
     Indication: PULMONARY ARTERIAL HYPERTENSION
     Dosage: 5 MG, QD
     Route: 048
     Dates: start: 20130410
  18. LASIX [Concomitant]
     Active Substance: FUROSEMIDE
  19. LIPITOR [Concomitant]
     Active Substance: ATORVASTATIN CALCIUM
  20. ESTROVEN [Concomitant]
     Active Substance: DIETARY SUPPLEMENT
  21. CALCIUM [Concomitant]
     Active Substance: CALCIUM
  22. LETAIRIS [Suspect]
     Active Substance: AMBRISENTAN
     Indication: CHRONIC OBSTRUCTIVE PULMONARY DISEASE
  23. FISH OIL [Concomitant]
     Active Substance: FISH OIL

REACTIONS (1)
  - Dyspnoea [Not Recovered/Not Resolved]

NARRATIVE: CASE EVENT DATE: 20131231
